FAERS Safety Report 11728707 (Version 7)
Quarter: 2018Q2

REPORT INFORMATION
  Report Type: Report from Study
  Country: KR (occurrence: KR)
  Receive Date: 20151112
  Receipt Date: 20180628
  Transmission Date: 20180711
  Serious: Yes (Hospitalization)
  Sender: FDA-Public Use
  Company Number: KR-BAYER-2015-407771

PATIENT
  Age: 10 Year
  Sex: Female

DRUGS (4)
  1. BETAFERON [Suspect]
     Active Substance: INTERFERON BETA-1B
     Indication: MULTIPLE SCLEROSIS
     Dosage: 0.75 ML, UNK
     Route: 058
     Dates: start: 2015
  2. BETAFERON [Suspect]
     Active Substance: INTERFERON BETA-1B
     Indication: MULTIPLE SCLEROSIS
     Dosage: UNK
     Route: 058
  3. BETAFERON [Suspect]
     Active Substance: INTERFERON BETA-1B
     Indication: MULTIPLE SCLEROSIS
     Dosage: .5 ML, UNK
     Route: 058
     Dates: start: 2015
  4. BETAFERON [Suspect]
     Active Substance: INTERFERON BETA-1B
     Indication: MULTIPLE SCLEROSIS
     Dosage: .5 UNK, QOD
     Route: 058
     Dates: start: 20150824, end: 2015

REACTIONS (9)
  - Off label use [None]
  - Seizure [Recovered/Resolved]
  - Injection site erythema [Recovered/Resolved]
  - Visual impairment [Recovering/Resolving]
  - Dizziness [Recovered/Resolved]
  - Pain of skin [Recovered/Resolved]
  - Nuclear magnetic resonance imaging abnormal [Recovering/Resolving]
  - Injection site erythema [Not Recovered/Not Resolved]
  - Headache [Recovering/Resolving]

NARRATIVE: CASE EVENT DATE: 20150824
